FAERS Safety Report 10360860 (Version 2)
Quarter: 2014Q3

REPORT INFORMATION
  Report Type: Spontaneous
  Country: IE (occurrence: IE)
  Receive Date: 20140804
  Receipt Date: 20140804
  Transmission Date: 20150326
  Serious: Yes (Hospitalization)
  Sender: FDA-Public Use
  Company Number: IE-AMGEN-IRLSP2014047415

PATIENT
  Age: 69 Year
  Sex: Female

DRUGS (2)
  1. ARANESP [Suspect]
     Active Substance: DARBEPOETIN ALFA
     Indication: RENAL FAILURE CHRONIC
     Dosage: 20 MUG, Q2WK
     Route: 058
     Dates: start: 20130321
  2. ARANESP [Suspect]
     Active Substance: DARBEPOETIN ALFA
     Indication: NEPHROGENIC ANAEMIA

REACTIONS (6)
  - Pain [Recovered/Resolved]
  - Herpes zoster [Recovered/Resolved]
  - Hyperthyroidism [Unknown]
  - Goitre [Unknown]
  - Pruritus [Not Recovered/Not Resolved]
  - Scab [Recovered/Resolved]

NARRATIVE: CASE EVENT DATE: 201405
